FAERS Safety Report 5863705-1 (Version None)
Quarter: 2008Q3

REPORT INFORMATION
  Report Type: 
  Country: None (occurrence: None)
  Receive Date: 20080828
  Receipt Date: 20080820
  Transmission Date: 20090109
  Serious: Yes (Hospitalization, Other)
  Sender: FDA-Public Use
  Company Number: DE-PFIZER INC-2008071316

PATIENT
  Sex: Female

DRUGS (3)
  1. ATARAX [Suspect]
     Dosage: DAILY DOSE:125MG
     Route: 048
     Dates: start: 20080820, end: 20080820
  2. ASPIRIN [Suspect]
     Dosage: DAILY DOSE:5000MG
     Route: 048
     Dates: start: 20080820, end: 20080820
  3. ACETAMINOPHEN [Suspect]
     Dosage: DAILY DOSE:1625MG
     Route: 048
     Dates: start: 20080820, end: 20080820

REACTIONS (3)
  - FATIGUE [None]
  - INTENTIONAL OVERDOSE [None]
  - SUICIDE ATTEMPT [None]
